FAERS Safety Report 14828310 (Version 6)
Quarter: 2018Q2

REPORT INFORMATION
  Report Type: Report from Study
  Country: FR (occurrence: FR)
  Receive Date: 20180430
  Receipt Date: 20180611
  Transmission Date: 20180711
  Serious: Yes (Hospitalization, Other)
  Sender: FDA-Public Use
  Company Number: FR-PFIZER INC-2018117408

PATIENT
  Age: 16 Year
  Sex: Male

DRUGS (11)
  1. ONCASPAR [Suspect]
     Active Substance: PEGASPARGASE
     Indication: ACUTE LYMPHOCYTIC LEUKAEMIA
     Dosage: UNK
  2. ADRIAMYCIN [Suspect]
     Active Substance: DOXORUBICIN HYDROCHLORIDE
     Indication: ACUTE LYMPHOCYTIC LEUKAEMIA
     Dosage: 56 MG, 1X/DAY (QD)
     Route: 042
     Dates: start: 20180117
  3. PEGASPARGASE [Suspect]
     Active Substance: PEGASPARGASE
     Indication: ACUTE LYMPHOCYTIC LEUKAEMIA
     Dosage: UNK
  4. VINCRISTINE SULFATE. [Suspect]
     Active Substance: VINCRISTINE SULFATE
     Indication: ACUTE LYMPHOCYTIC LEUKAEMIA
     Dosage: 2 MG, 1X/DAY (QD)
     Route: 042
     Dates: start: 20180117
  5. ADRIAMYCIN [Suspect]
     Active Substance: DOXORUBICIN HYDROCHLORIDE
     Dosage: 56 MG, 1X/DAY
     Route: 042
     Dates: start: 20180212
  6. VINCRISTINE SULFATE. [Suspect]
     Active Substance: VINCRISTINE SULFATE
     Dosage: 2 MG, 1X/DAY
     Route: 042
     Dates: start: 20180202
  7. DEXAMETHASONE. [Suspect]
     Active Substance: DEXAMETHASONE
     Indication: ACUTE LYMPHOCYTIC LEUKAEMIA
     Dosage: 19 MG, 1X/DAY (QD)
     Route: 048
     Dates: start: 20180117, end: 20180206
  8. METHOTREXATE. [Suspect]
     Active Substance: METHOTREXATE
     Indication: ACUTE LYMPHOCYTIC LEUKAEMIA
     Dosage: 15 MG, 1X/DAY (QD)
     Route: 037
     Dates: start: 20180120
  9. ERWINASE [Suspect]
     Active Substance: ASPARAGINASE ERWINIA CHRYSANTHEMI
     Indication: ACUTE LYMPHOCYTIC LEUKAEMIA
     Dosage: 37200 IU, UNK
     Route: 042
     Dates: start: 20180120, end: 20180202
  10. CRISANTASPASE [Suspect]
     Active Substance: ASPARAGINASE ERWINIA CHRYSANTHEMI
     Indication: ACUTE LYMPHOCYTIC LEUKAEMIA
     Dosage: 37200 IU, 1X/DAY (QD)
     Route: 042
     Dates: start: 20180120, end: 20180202
  11. VINCRISTINE SULFATE. [Suspect]
     Active Substance: VINCRISTINE SULFATE
     Dosage: 2 MG, 1X/DAY
     Route: 042
     Dates: start: 20180212

REACTIONS (2)
  - Abdominal pain [Recovered/Resolved]
  - Melaena [Recovered/Resolved]

NARRATIVE: CASE EVENT DATE: 20180207
